FAERS Safety Report 17203083 (Version 1)
Quarter: 2019Q4

REPORT INFORMATION
  Report Type: Spontaneous
  Country: FR (occurrence: FR)
  Receive Date: 20191226
  Receipt Date: 20191226
  Transmission Date: 20200122
  Serious: Yes (Hospitalization)
  Sender: FDA-Public Use
  Company Number: FR-MYLANLABS-2019M1126365

PATIENT
  Age: 69 Year
  Sex: Female
  Weight: 63 kg

DRUGS (8)
  1. OFEV [Suspect]
     Active Substance: NINTEDANIB
     Indication: IDIOPATHIC PULMONARY FIBROSIS
     Dosage: 2 DOSAGE FORM, QD
     Route: 048
     Dates: start: 20190401, end: 20190724
  2. SKENAN [Suspect]
     Active Substance: MORPHINE SULFATE
     Indication: PAIN
     Dosage: 2 DOSAGE FORM, QD
     Route: 048
  3. CEFOTAXIME MYLAN GENERICS [Suspect]
     Active Substance: CEFOTAXIME SODIUM
     Indication: MENINGITIS
     Dosage: UNK
     Route: 042
     Dates: start: 20190717, end: 20190724
  4. MYLAN-GLICLAZIDE [Suspect]
     Active Substance: GLICLAZIDE
     Indication: INSULIN-REQUIRING TYPE 2 DIABETES MELLITUS
     Dosage: 60 MILLIGRAM, QD
     Route: 048
  5. METFORMINE ARROW [Suspect]
     Active Substance: METFORMIN HYDROCHLORIDE
     Indication: INSULIN-REQUIRING TYPE 2 DIABETES MELLITUS
     Dosage: 2 DOSAGE FORM, QD
     Route: 048
  6. TEMERIT DUO [Suspect]
     Active Substance: HYDROCHLOROTHIAZIDE\NEBIVOLOL HYDROCHLORIDE
     Indication: HYPERTENSION
     Dosage: 1 DOSAGE FORM, QD
     Route: 048
  7. RABEPRAZOLE [Suspect]
     Active Substance: RABEPRAZOLE
     Indication: GASTROOESOPHAGEAL REFLUX DISEASE
     Dosage: 40 MILLIGRAM, QD
     Route: 048
  8. DOLIPRANE [Suspect]
     Active Substance: ACETAMINOPHEN
     Indication: PAIN
     Dosage: 6 DOSAGE FORM, QD
     Route: 048
     Dates: end: 20190724

REACTIONS (3)
  - Hepatocellular injury [Recovered/Resolved]
  - Cholestasis [Recovered/Resolved]
  - Acute kidney injury [Recovered/Resolved]

NARRATIVE: CASE EVENT DATE: 20190724
